FAERS Safety Report 9839087 (Version 2)
Quarter: 2014Q1

REPORT INFORMATION
  Report Type: Spontaneous
  Country: US (occurrence: US)
  Receive Date: 20140123
  Receipt Date: 20140218
  Transmission Date: 20141002
  Serious: Yes (Death, Hospitalization)
  Sender: FDA-Public Use
  Company Number: US-JNJFOC-20140113854

PATIENT
  Age: 72 Year
  Sex: Male
  Weight: 67.1 kg

DRUGS (6)
  1. IMBRUVICA [Suspect]
     Indication: MANTLE CELL LYMPHOMA
     Route: 048
     Dates: start: 20131204
  2. OXYCODONE [Concomitant]
  3. PRILOSEC [Concomitant]
  4. GABAPENTIN [Concomitant]
  5. ACYCLOVIR [Concomitant]
  6. SCOPOLAMINE [Concomitant]
     Route: 062

REACTIONS (2)
  - Mantle cell lymphoma [Fatal]
  - Pneumonia [Unknown]
